FAERS Safety Report 17041528 (Version 1)
Quarter: 2019Q4

REPORT INFORMATION
  Report Type: Spontaneous
  Country: RU (occurrence: RU)
  Receive Date: 20191118
  Receipt Date: 20191118
  Transmission Date: 20200122
  Serious: Yes (Death, Other)
  Sender: FDA-Public Use
  Company Number: RU-ASTRAZENECA-2019SF62962

PATIENT
  Age: 60 Year
  Sex: Male

DRUGS (1)
  1. TAGRISSO [Suspect]
     Active Substance: OSIMERTINIB
     Indication: LUNG CARCINOMA CELL TYPE UNSPECIFIED STAGE III
     Route: 048

REACTIONS (4)
  - Malignant neoplasm progression [Fatal]
  - Product distribution issue [Unknown]
  - Metastases to neck [Unknown]
  - Product dose omission [Unknown]
